FAERS Safety Report 21362142 (Version 4)
Quarter: 2023Q2

REPORT INFORMATION
  Report Type: Report from Study
  Country: US (occurrence: US)
  Receive Date: 20220922
  Receipt Date: 20230407
  Transmission Date: 20230721
  Serious: Yes (Hospitalization, Other)
  Sender: FDA-Public Use
  Company Number: US-ABBVIE-4128638

PATIENT
  Age: 76 Year
  Sex: Female

DRUGS (15)
  1. DUOPA [Suspect]
     Active Substance: CARBIDOPA\LEVODOPA
     Indication: Parkinson^s disease
     Route: 050
  2. DUOPA [Suspect]
     Active Substance: CARBIDOPA\LEVODOPA
  3. LEVOTHYROXINE [Concomitant]
     Active Substance: LEVOTHYROXINE
     Indication: Product used for unknown indication
     Dosage: 112 MCG TABLET
  4. DONEPEZIL [Concomitant]
     Active Substance: DONEPEZIL
     Indication: Product used for unknown indication
     Dosage: 10 MG TABLET
  5. VITAMIN C [Concomitant]
     Active Substance: ASCORBIC ACID
     Indication: Product used for unknown indication
     Dosage: 1,000 MG TABLET
  6. CITRATE OF MAGNESIUM [Concomitant]
     Active Substance: MAGNESIUM CITRATE
     Indication: Product used for unknown indication
     Dosage: ORAL SOLUTION
  7. VITAMIN B-COMPLEX [Concomitant]
     Active Substance: DEXPANTHENOL\NIACINAMIDE\PYRIDOXINE HYDROCHLORIDE\RIBOFLAVIN 5^-PHOSPHATE SODIUM\THIAMINE HYDROCHLOR
     Indication: Product used for unknown indication
  8. CALCIUM [Concomitant]
     Active Substance: CALCIUM
     Indication: Product used for unknown indication
     Dosage: 500
  9. ENEMA (SODIUM PHOSPHATE, DIBASIC\SODIUM PHOSPHATE, MONOBASIC) [Concomitant]
     Active Substance: SODIUM PHOSPHATE, DIBASIC\SODIUM PHOSPHATE, MONOBASIC
     Indication: Product used for unknown indication
     Dosage: READY-TO-USE 133ML
  10. CEPHALEXIN [Concomitant]
     Active Substance: CEPHALEXIN
     Indication: Product used for unknown indication
     Dosage: 250 MG TABLET
  11. ACETAMINOPHEN [Concomitant]
     Active Substance: ACETAMINOPHEN
     Indication: Product used for unknown indication
     Dosage: 650 MG TABLET?EXTENDED RELEASE
  12. BACLOFEN [Concomitant]
     Active Substance: BACLOFEN
     Indication: Product used for unknown indication
     Dosage: 10 MG TABLET
  13. LINZESS [Concomitant]
     Active Substance: LINACLOTIDE
     Indication: Product used for unknown indication
     Dosage: 145 MCG CAPSULE
  14. ENTACAPONE JG [Concomitant]
     Indication: Product used for unknown indication
     Dosage: 200 MG TABLET
  15. COENZYME Q10 [Concomitant]
     Active Substance: DIETARY SUPPLEMENT\UBIDECARENONE
     Indication: Product used for unknown indication
     Dosage: 400 MG CAPSULE

REACTIONS (25)
  - Hospitalisation [Unknown]
  - Walking aid user [Unknown]
  - Orthostatic hypotension [Unknown]
  - Constipation [Unknown]
  - Urinary tract infection [Unknown]
  - Memory impairment [Unknown]
  - Lumbar vertebral fracture [Unknown]
  - Nephrolithiasis [Unknown]
  - Parkinson^s disease [Unknown]
  - Mental status changes [Recovered/Resolved]
  - Hypotension [Unknown]
  - Transient ischaemic attack [Unknown]
  - Metabolic encephalopathy [Unknown]
  - COVID-19 [Unknown]
  - Spinal osteoarthritis [Unknown]
  - Presyncope [Unknown]
  - Rapid eye movement sleep behaviour disorder [Unknown]
  - Akinesia [Unknown]
  - Dyskinesia [Unknown]
  - Lumbar spinal stenosis [Unknown]
  - Overweight [Unknown]
  - Physical deconditioning [Unknown]
  - Mental status changes [Unknown]
  - Multiple drug therapy [Unknown]
  - Mobility decreased [Unknown]

NARRATIVE: CASE EVENT DATE: 20190314
